FAERS Safety Report 10039964 (Version 1)
Quarter: 2014Q1

REPORT INFORMATION
  Report Type: Spontaneous
  Country: US (occurrence: US)
  Receive Date: 20140326
  Receipt Date: 20140326
  Transmission Date: 20141002
  Serious: Yes (Hospitalization)
  Sender: FDA-Public Use
  Company Number: US-JNJFOC-20140311948

PATIENT
  Age: 39 Year
  Sex: Male
  Weight: 86.18 kg

DRUGS (1)
  1. METHYLPHENIDATE HYDROCHLORIDE [Suspect]
     Indication: ATTENTION DEFICIT/HYPERACTIVITY DISORDER
     Route: 048
     Dates: start: 2013

REACTIONS (5)
  - Muscle injury [Unknown]
  - Compartment syndrome [Unknown]
  - Amphetamines positive [Not Recovered/Not Resolved]
  - X-ray limb abnormal [Not Recovered/Not Resolved]
  - Impaired healing [Not Recovered/Not Resolved]
